FAERS Safety Report 9918217 (Version 1)
Quarter: 2014Q1

REPORT INFORMATION
  Report Type: Report from Study
  Country: US (occurrence: US)
  Receive Date: 20140223
  Receipt Date: 20140223
  Transmission Date: 20141002
  Serious: Yes (Other)
  Sender: FDA-Public Use
  Company Number: US-ROCHE-1327719

PATIENT
  Age: 53 Year
  Sex: Male

DRUGS (7)
  1. LUCENTIS [Suspect]
     Indication: CHOROIDAL NEOVASCULARISATION
     Route: 050
     Dates: start: 20090717, end: 20120113
  2. LUCENTIS [Suspect]
     Route: 050
     Dates: start: 20120113
  3. AVASTIN [Suspect]
     Indication: CHOROIDAL NEOVASCULARISATION
     Route: 050
     Dates: start: 20080314, end: 20090612
  4. LISINOPRIL [Concomitant]
     Route: 048
  5. METFORMIN HYDROCHLORIDE [Concomitant]
     Route: 048
  6. FLUTICASONE PROPIONATE [Concomitant]
     Dosage: 50 MCG (1 PUFF)
     Route: 055
  7. SYSTANE [Concomitant]
     Dosage: AS NEEDED IN AM, BOTH EYES
     Route: 065

REACTIONS (14)
  - Retinal oedema [Unknown]
  - Macular oedema [Unknown]
  - Chorioretinal atrophy [Unknown]
  - Retinal pigment epitheliopathy [Unknown]
  - Retinal scar [Unknown]
  - Type 2 diabetes mellitus [Unknown]
  - Macular degeneration [Unknown]
  - Vision blurred [Unknown]
  - Visual acuity reduced [Unknown]
  - Cataract nuclear [Unknown]
  - Macular degeneration [Unknown]
  - Retinal degeneration [Unknown]
  - Off label use [Unknown]
  - Retinal vein occlusion [Not Recovered/Not Resolved]
